FAERS Safety Report 14797517 (Version 1)
Quarter: 2018Q2

REPORT INFORMATION
  Report Type: Report from Study
  Country: CN (occurrence: CN)
  Receive Date: 20180424
  Receipt Date: 20180424
  Transmission Date: 20180711
  Serious: Yes (Other)
  Sender: FDA-Public Use
  Company Number: CN-ROCHE-2110147

PATIENT

DRUGS (8)
  1. RITUXIMAB. [Suspect]
     Active Substance: RITUXIMAB
     Indication: RENAL TRANSPLANT
     Dosage: BEFORE SURGERY
     Route: 065
  2. TACROLIMUS. [Suspect]
     Active Substance: TACROLIMUS
     Indication: RENAL TRANSPLANT
     Dosage: 3MG DAILY AT FIRST,THEN ADJUST DOSE,BEFORE SURGERY
     Route: 048
  3. TACROLIMUS. [Suspect]
     Active Substance: TACROLIMUS
     Dosage: FROM THE SECOND DATE AFTER KIDNEY TRANSPLANT
     Route: 048
  4. PREDNISOLONE. [Suspect]
     Active Substance: PREDNISOLONE
     Dosage: 60MG DAILY FROM 4TH AFTER SURGERY,THEN REDUCE DOSE
     Route: 048
  5. MYCOPHENOLATE MOFETIL. [Suspect]
     Active Substance: MYCOPHENOLATE MOFETIL
     Indication: RENAL TRANSPLANT
     Dosage: 2000MG DAILY AT FIRST, THEN ADJUST DOSAGE
     Route: 048
  6. METHYLPREDNISOLON [Suspect]
     Active Substance: METHYLPREDNISOLONE
     Indication: RENAL TRANSPLANT
     Dosage: 500MG DURING THE SURGERY
     Route: 042
  7. METHYLPREDNISOLON [Suspect]
     Active Substance: METHYLPREDNISOLONE
     Dosage: 200MG DAILY FROM 1ST TO 3RD DATE AFTER SURGERY
     Route: 042
  8. PREDNISOLONE. [Suspect]
     Active Substance: PREDNISOLONE
     Indication: RENAL TRANSPLANT
     Dosage: 5MG DAILY, BEFORE SURGERY
     Route: 048

REACTIONS (6)
  - Lung infection [Unknown]
  - Intentional product use issue [Unknown]
  - Upper gastrointestinal haemorrhage [Unknown]
  - Urinary tract infection [Unknown]
  - Off label use [Unknown]
  - Bone marrow failure [Unknown]
